FAERS Safety Report 5690835-X (Version None)
Quarter: 2008Q2

REPORT INFORMATION
  Report Type: 
  Country: None (occurrence: None)
  Receive Date: 20080401
  Receipt Date: 20080328
  Transmission Date: 20081010
  Serious: Yes (Other)
  Sender: FDA-Public Use
  Company Number: B0514700A

PATIENT
  Age: 30 Year
  Sex: Female

DRUGS (7)
  1. SEROXAT [Suspect]
     Indication: DRUG USE FOR UNKNOWN INDICATION
     Dosage: 20MG PER DAY
     Route: 048
     Dates: start: 20070108
  2. LAMOTRIGINE [Suspect]
     Indication: EPILEPSY
     Route: 048
     Dates: start: 20060830
  3. TRANXILIUM [Concomitant]
     Dosage: 50MG PER DAY
     Route: 048
     Dates: start: 20070108
  4. NOCTAMID [Concomitant]
     Route: 048
     Dates: start: 20061109
  5. CEFUROXIM-RATIOPHARM [Concomitant]
     Route: 048
     Dates: start: 20071002
  6. DOLMEN [Concomitant]
     Route: 048
     Dates: start: 20071002
  7. ORFIDAL [Concomitant]
     Dosage: 1MG PER DAY
     Route: 048
     Dates: start: 20061213

REACTIONS (1)
  - GALACTORRHOEA [None]
